FAERS Safety Report 14638777 (Version 1)
Quarter: 2018Q1

REPORT INFORMATION
  Report Type: Spontaneous
  Country: FR (occurrence: FR)
  Receive Date: 20180315
  Receipt Date: 20180315
  Transmission Date: 20180509
  Serious: Yes (Other)
  Sender: FDA-Public Use
  Company Number: FR-MERCK KGAA-2043746

PATIENT
  Age: 45 Year
  Sex: Female

DRUGS (1)
  1. NOVOTHYROX [Suspect]
     Active Substance: LEVOTHYROXINE SODIUM
     Indication: PRODUCT USED FOR UNKNOWN INDICATION

REACTIONS (14)
  - Tremor [None]
  - Amnesia [None]
  - Mood swings [None]
  - Impaired work ability [None]
  - Pain [None]
  - Loss of employment [None]
  - Loss of libido [None]
  - Fatigue [None]
  - Apathy [None]
  - Insomnia [None]
  - Gait disturbance [None]
  - Emotional disorder [None]
  - Pain in extremity [None]
  - Irritability [None]

NARRATIVE: CASE EVENT DATE: 201707
